FAERS Safety Report 6100643-3 (Version None)
Quarter: 2009Q1

REPORT INFORMATION
  Report Type: 
  Country: None (occurrence: None)
  Receive Date: 20090303
  Receipt Date: 20090219
  Transmission Date: 20090719
  Serious: Yes (Death)
  Sender: FDA-Public Use
  Company Number: US-PFIZER INC-2009173196

PATIENT
  Age: 55 Year
  Sex: Female

DRUGS (2)
  1. XANAX [Suspect]
     Dosage: UNK
     Dates: end: 20090101
  2. OXYMORPHONE HYDROCHLORIDE [Suspect]
     Dosage: 10 MG, 2X/DAY
     Dates: end: 20090201

REACTIONS (2)
  - DEATH [None]
  - OVERDOSE [None]
